FAERS Safety Report 7917411-X (Version None)
Quarter: 2011Q4

REPORT INFORMATION
  Report Type: 
  Country: None (occurrence: None)
  Receive Date: 20111116
  Receipt Date: 20111110
  Transmission Date: 20120403
  Serious: Yes (Hospitalization)
  Sender: FDA-Public Use
  Company Number: FR-PFIZER INC-2011275460

PATIENT
  Age: 12 Year
  Sex: Male

DRUGS (1)
  1. IBUPROFEN (ADVIL) [Suspect]
     Indication: UPPER LIMB FRACTURE
     Dosage: 200 MG, 3 INTAKES

REACTIONS (4)
  - POLYURIA [None]
  - RENAL IMPAIRMENT [None]
  - HAEMATURIA [None]
  - RENAL TUBULAR DISORDER [None]
